FAERS Safety Report 6396561-6 (Version None)
Quarter: 2009Q4

REPORT INFORMATION
  Report Type: 
  Country: None (occurrence: None)
  Receive Date: 20091012
  Receipt Date: 20091007
  Transmission Date: 20100525
  Serious: Yes (Hospitalization)
  Sender: FDA-Public Use
  Company Number: US-B.I. PHARMACEUTICALS,INC./RIDGEFIELD-2009-BP-07405BP

PATIENT
  Sex: Male
  Weight: 98.88 kg

DRUGS (12)
  1. MIRAPEX [Suspect]
     Indication: RESTLESS LEGS SYNDROME
     Dosage: 0.75 MG
     Route: 048
     Dates: start: 20000101, end: 20090616
  2. MIRAPEX [Suspect]
     Indication: PARKINSON'S DISEASE
  3. LIPITOR [Concomitant]
     Dosage: 10 MG
  4. ASACOL [Concomitant]
     Dosage: 1600 MG
  5. ELAVIL [Concomitant]
     Dosage: 25 MG
  6. MELOXICAM [Concomitant]
     Dosage: 15 MG
  7. LIBRAX [Concomitant]
  8. MULTI-VITAMIN [Concomitant]
  9. VITAMIN D [Concomitant]
  10. FISH OIL [Concomitant]
  11. ZINC [Concomitant]
  12. ZYLOPRIM [Concomitant]
     Dosage: 100 MG

REACTIONS (5)
  - DRUG INEFFECTIVE [None]
  - DYSKINESIA [None]
  - INSOMNIA [None]
  - MUSCLE SPASMS [None]
  - RESTLESS LEGS SYNDROME [None]
